FAERS Safety Report 11548702 (Version 1)
Quarter: 2015Q3

REPORT INFORMATION
  Report Type: Spontaneous
  Country: JP (occurrence: JP)
  Receive Date: 20150924
  Receipt Date: 20150924
  Transmission Date: 20151125
  Serious: Yes (Other)
  Sender: FDA-Public Use
  Company Number: JP-HQ SPECIALTY-JP-2015INT000549

PATIENT
  Age: 63 Year
  Sex: Female

DRUGS (3)
  1. PACLITAXEL. [Suspect]
     Active Substance: PACLITAXEL
     Indication: METASTATIC NEOPLASM
     Dosage: UNK, DOSE X 3 CYCLES
  2. CARBOPLATIN. [Suspect]
     Active Substance: CARBOPLATIN
     Indication: METASTATIC NEOPLASM
     Dosage: UNK, DOSE X 3 CYCLES
  3. CARBOPLATIN. [Suspect]
     Active Substance: CARBOPLATIN
     Dosage: UNK

REACTIONS (3)
  - Pneumothorax spontaneous [Recovered/Resolved]
  - Chest pain [Recovered/Resolved]
  - Discomfort [Recovered/Resolved]
